FAERS Safety Report 7782938-0 (Version None)
Quarter: 2011Q3

REPORT INFORMATION
  Report Type: 
  Country: None (occurrence: None)
  Receive Date: 20110928
  Receipt Date: 20110919
  Transmission Date: 20111222
  Serious: Yes (Hospitalization)
  Sender: FDA-Public Use
  Company Number: US-JNJFOC-20110711991

PATIENT
  Sex: Female
  Weight: 46 kg

DRUGS (9)
  1. HUMIRA [Concomitant]
     Dates: start: 20080906
  2. FERROUS SULFATE TAB [Concomitant]
  3. METHOTREXATE [Concomitant]
     Indication: CROHN'S DISEASE
     Dates: start: 20081013, end: 20110624
  4. AZITHROMYCIN [Concomitant]
  5. REMICADE [Suspect]
     Indication: CROHN'S DISEASE
     Route: 042
     Dates: start: 20041224, end: 20060606
  6. HUMIRA [Concomitant]
     Indication: CROHN'S DISEASE
     Dates: start: 20110624
  7. ADALIMUMAB [Concomitant]
     Dates: start: 20080906, end: 20110629
  8. HUMIRA [Concomitant]
     Dates: start: 20110220
  9. MULTI-VITAMINS [Concomitant]

REACTIONS (1)
  - PNEUMONIA [None]
